FAERS Safety Report 6189840-9 (Version None)
Quarter: 2009Q2

REPORT INFORMATION
  Report Type: 
  Country: None (occurrence: None)
  Receive Date: 20090512
  Receipt Date: 20090512
  Transmission Date: 20091009
  Serious: Yes (Other)
  Sender: FDA-Public Use
  Company Number: None

PATIENT
  Sex: Male
  Weight: 81.6475 kg

DRUGS (1)
  1. SERTRALINE [Suspect]
     Indication: DEPRESSION
     Dosage: ONE HALF TO TWO TABLETS ONE TIME PER DAT PO
     Route: 048
     Dates: start: 20090311, end: 20090403

REACTIONS (1)
  - SOMNOLENCE [None]
